FAERS Safety Report 13338471 (Version 1)
Quarter: 2017Q1

REPORT INFORMATION
  Report Type: Spontaneous
  Country: US (occurrence: US)
  Receive Date: 20170315
  Receipt Date: 20170315
  Transmission Date: 20170428
  Serious: No
  Sender: FDA-Public Use
  Company Number: US-ASTRAZENECA-2017SE25293

PATIENT
  Sex: Female
  Weight: 79.4 kg

DRUGS (3)
  1. METHADONE [Concomitant]
     Active Substance: METHADONE HYDROCHLORIDE
  2. STOOL SOFTENER (DOCUSATE) [Concomitant]
     Active Substance: DOCUSATE
  3. MOVANTIK [Suspect]
     Active Substance: NALOXEGOL OXALATE
     Indication: ABDOMINAL DISCOMFORT
     Dosage: 25 MG AT NIGHT BEFORE BED
     Route: 048

REACTIONS (4)
  - Constipation [Unknown]
  - Drug ineffective [Unknown]
  - Dyschezia [Unknown]
  - Intentional product misuse [Unknown]
